FAERS Safety Report 6297243-1 (Version None)
Quarter: 2009Q3

REPORT INFORMATION
  Report Type: 
  Country: None (occurrence: None)
  Receive Date: 20090804
  Receipt Date: 20090804
  Transmission Date: 20100115
  Serious: No
  Sender: FDA-Public Use
  Company Number: None

PATIENT
  Age: 61 Year
  Sex: Female
  Weight: 65.7716 kg

DRUGS (1)
  1. PHENYTOIN EX CAP 100 MG [Suspect]
     Indication: EPILEPSY
     Dosage: 300 MG 3 100 MG CAPSULES 3 TAKEN AT ONE TIME ORALLY
     Route: 048
     Dates: start: 20081101, end: 20090219

REACTIONS (3)
  - CAPSULE ISSUE [None]
  - PRODUCT SUBSTITUTION ISSUE [None]
  - PRODUCT TASTE ABNORMAL [None]
